FAERS Safety Report 6466742-1 (Version None)
Quarter: 2009Q4

REPORT INFORMATION
  Report Type: 
  Country: None (occurrence: None)
  Receive Date: 20091202
  Receipt Date: 20091126
  Transmission Date: 20100525
  Serious: Yes (Hospitalization, Other)
  Sender: FDA-Public Use
  Company Number: CH-WYE-G04987509

PATIENT
  Age: 1 Day
  Sex: Male

DRUGS (5)
  1. EFFEXOR XR [Suspect]
     Route: 064
     Dates: start: 20080101
  2. CANNABIS [Suspect]
     Dosage: POSSIBLE USE OF CANNABIS SHORTLY BEFORE DELIVERY
     Route: 064
  3. REMERON [Interacting]
     Dosage: UNKNOWN START DATE, STOPPED IN 2008, DOSE AND FREQUENCY UNKNOWN
     Route: 064
  4. SURMONTIL [Interacting]
     Route: 064
     Dates: start: 20080101
  5. NOZINAN [Interacting]
     Dosage: START DATE UNKNOWN, DOSE AND FREQUENCY AS REQUIRED
     Route: 064

REACTIONS (3)
  - DRUG EXPOSURE DURING PREGNANCY [None]
  - DRUG INTERACTION [None]
  - DRUG WITHDRAWAL SYNDROME NEONATAL [None]
